FAERS Safety Report 9535599 (Version 1)
Quarter: 2013Q3

REPORT INFORMATION
  Report Type: Spontaneous
  Country: US (occurrence: US)
  Receive Date: 20130919
  Receipt Date: 20130919
  Transmission Date: 20140515
  Serious: No
  Sender: FDA-Public Use
  Company Number: US-B.I. PHARMACEUTICALS,INC./RIDGEFIELD-2013-BI-28402BP

PATIENT
  Sex: Male

DRUGS (2)
  1. FLOMAX CAPSULES [Suspect]
     Indication: BENIGN PROSTATIC HYPERPLASIA
     Dosage: 0.4 MG
     Route: 048
     Dates: start: 201308
  2. AMIODARONE [Concomitant]
     Indication: HYPERTENSION
     Route: 048

REACTIONS (1)
  - Nocturia [Not Recovered/Not Resolved]
